FAERS Safety Report 4835375-2 (Version None)
Quarter: 2005Q4

REPORT INFORMATION
  Report Type: 
  Country: None (occurrence: None)
  Receive Date: 20051114
  Receipt Date: 20051102
  Transmission Date: 20060501
  Serious: Yes (Other)
  Sender: FDA-Public Use
  Company Number: 2005150288

PATIENT
  Age: 57 Year
  Sex: Male
  Weight: 90.7194 kg

DRUGS (5)
  1. LIPITOR [Suspect]
     Indication: CARDIOVASCULAR EVENT PROPHYLAXIS
     Dosage: 40 MG (40 MG, 1 IN 1 D), ORAL
     Route: 049
     Dates: start: 20050101, end: 20051001
  2. ALTACE [Concomitant]
  3. TOPROL (METOPROLOL) [Concomitant]
  4. ASPIRIN [Concomitant]
  5. LASIX [Concomitant]

REACTIONS (3)
  - ARTHRALGIA [None]
  - HERNIA REPAIR [None]
  - MUSCLE SPASMS [None]
